FAERS Safety Report 7115741-5 (Version None)
Quarter: 2010Q4

REPORT INFORMATION
  Report Type: 
  Country: None (occurrence: None)
  Receive Date: 20101122
  Receipt Date: 20101110
  Transmission Date: 20110411
  Serious: Yes (Hospitalization)
  Sender: FDA-Public Use
  Company Number: JP-SANOFI-AVENTIS-2010SA067857

PATIENT
  Age: 30 Year
  Sex: Male
  Weight: 58.2 kg

DRUGS (1)
  1. MYSLEE [Suspect]
     Route: 048
     Dates: start: 20101015, end: 20101015

REACTIONS (2)
  - LIVER FUNCTION TEST ABNORMAL [None]
  - RHABDOMYOLYSIS [None]
